FAERS Safety Report 17040924 (Version 1)
Quarter: 2019Q4

REPORT INFORMATION
  Report Type: Report from Study
  Country: US (occurrence: US)
  Receive Date: 20191118
  Receipt Date: 20191118
  Transmission Date: 20200122
  Serious: Yes (Hospitalization, Disabling, Other)
  Sender: FDA-Public Use
  Company Number: US-AUROBINDO-AUR-APL-2019-072188

PATIENT
  Age: 26 Year
  Sex: Male

DRUGS (1)
  1. DEXAMETHASONE. [Suspect]
     Active Substance: DEXAMETHASONE
     Indication: MENINGITIS PNEUMOCOCCAL
     Dosage: UNK
     Route: 065

REACTIONS (4)
  - Cerebral infarction [Unknown]
  - Pyrexia [Unknown]
  - Brain stem infarction [Unknown]
  - Brain injury [Unknown]
